FAERS Safety Report 6100407-0 (Version None)
Quarter: 2009Q1

REPORT INFORMATION
  Report Type: 
  Country: None (occurrence: None)
  Receive Date: 20090226
  Receipt Date: 20081015
  Transmission Date: 20090719
  Serious: No
  Sender: FDA-Public Use
  Company Number: 2008-00010

PATIENT
  Age: 30 Year
  Sex: Female
  Weight: 65.7716 kg

DRUGS (1)
  1. AGE SHIELD SUNBLOCK SPF70:  AVOBENZONE 3%, HOMOSALATE15% [Suspect]
     Dosage: TOPICAL
     Route: 061
     Dates: start: 20081001, end: 20081002

REACTIONS (1)
  - DERMATITIS CONTACT [None]
